FAERS Safety Report 8285734-3 (Version None)
Quarter: 2012Q2

REPORT INFORMATION
  Report Type: 
  Country: None (occurrence: None)
  Receive Date: 20120413
  Receipt Date: 20120409
  Transmission Date: 20120825
  Serious: Yes (Death, Other)
  Sender: FDA-Public Use
  Company Number: CN-ROCHE-1058589

PATIENT
  Age: 71 Year
  Sex: Male

DRUGS (10)
  1. RITUXIMAB [Suspect]
     Indication: DIFFUSE LARGE B-CELL LYMPHOMA
     Dosage: TREATED TWICE
  2. PIRARUBICIN [Concomitant]
     Indication: DIFFUSE LARGE B-CELL LYMPHOMA
  3. VINDESINE [Concomitant]
     Indication: DIFFUSE LARGE B-CELL LYMPHOMA
  4. DEXAMETHASONE [Concomitant]
     Indication: DIFFUSE LARGE B-CELL LYMPHOMA
  5. ALLOPURINOL [Concomitant]
     Indication: DIFFUSE LARGE B-CELL LYMPHOMA
  6. ETOPOSIDE [Concomitant]
     Indication: DIFFUSE LARGE B-CELL LYMPHOMA
  7. PREDNISONE TAB [Concomitant]
     Indication: DIFFUSE LARGE B-CELL LYMPHOMA
  8. ALLOPURINOL [Concomitant]
  9. DOXORUBICIN HCL [Concomitant]
     Indication: DIFFUSE LARGE B-CELL LYMPHOMA
  10. CYCLOPHOSPHAMIDE [Concomitant]
     Indication: DIFFUSE LARGE B-CELL LYMPHOMA

REACTIONS (5)
  - TUMOUR LYSIS SYNDROME [None]
  - RESPIRATORY FAILURE [None]
  - MULTI-ORGAN FAILURE [None]
  - HEPATIC FAILURE [None]
  - RENAL FAILURE [None]
